FAERS Safety Report 6277773-9 (Version None)
Quarter: 2009Q3

REPORT INFORMATION
  Report Type: 
  Country: None (occurrence: None)
  Receive Date: 20090717
  Receipt Date: 20090717
  Transmission Date: 20100115
  Serious: Yes (Hospitalization)
  Sender: FDA-Public Use
  Company Number: None

PATIENT
  Age: 55 Year
  Sex: Male
  Weight: 76.1 kg

DRUGS (1)
  1. CEPHALEXIN [Suspect]
     Indication: INFECTION
     Dosage: 500 MG QID PO
     Route: 048
     Dates: start: 20090630, end: 20090701

REACTIONS (3)
  - PRURITUS [None]
  - RASH [None]
  - URTICARIA [None]
